FAERS Safety Report 5238559-7 (Version None)
Quarter: 2007Q1

REPORT INFORMATION
  Report Type: 
  Country: None (occurrence: None)
  Receive Date: 20070215
  Receipt Date: 20070214
  Transmission Date: 20070707
  Serious: Yes (Other)
  Sender: FDA-Public Use
  Company Number: US-GLAXOSMITHKLINE-A0639366A

PATIENT
  Age: 42 Year
  Sex: Female

DRUGS (1)
  1. CONTAC COLD + FLU MAXIMUM STRENGTH [Suspect]
     Indication: NASOPHARYNGITIS
     Route: 048
     Dates: start: 20070203, end: 20070203

REACTIONS (7)
  - ANAPHYLACTIC REACTION [None]
  - DYSPNOEA [None]
  - EYE SWELLING [None]
  - PRURITUS [None]
  - SWELLING [None]
  - THROAT TIGHTNESS [None]
  - URTICARIA [None]
